FAERS Safety Report 11198837 (Version 2)
Quarter: 2015Q2

REPORT INFORMATION
  Report Type: Spontaneous
  Country: US (occurrence: US)
  Receive Date: 20150618
  Receipt Date: 20150625
  Transmission Date: 20150821
  Serious: No
  Sender: FDA-Public Use
  Company Number: US-MYLANLABS-2015M1011756

PATIENT
  Sex: Female

DRUGS (4)
  1. AMLODIPINE BESYLATE TABLETS, USP [Suspect]
     Active Substance: AMLODIPINE BESYLATE
     Indication: HYPERTENSION
     Dosage: 10 MG, QD
     Route: 048
  2. ATORVASTATIN CALCIUM TABLETS [Suspect]
     Active Substance: ATORVASTATIN CALCIUM
     Indication: BLOOD CHOLESTEROL
     Dosage: 40 MG, QD
     Route: 048
     Dates: start: 2011
  3. POTASSIUM CHLORIDE EXTENDED-RELEASE TABLETS, USP [Suspect]
     Active Substance: POTASSIUM CHLORIDE
     Indication: ELECTROLYTE SUBSTITUTION THERAPY
     Dosage: 10 MEQ, BID
     Route: 048
     Dates: start: 2011
  4. VALSARTAN + HIDROCLOROTIAZIDA [Concomitant]
     Indication: HYPERTENSION
     Dosage: 320/25 MG, QD
     Route: 048

REACTIONS (1)
  - Joint swelling [Not Recovered/Not Resolved]

NARRATIVE: CASE EVENT DATE: 201504
